FAERS Safety Report 24362709 (Version 1)
Quarter: 2024Q3

REPORT INFORMATION
  Report Type: Spontaneous
  Country: US (occurrence: US)
  Receive Date: 20240925
  Receipt Date: 20240925
  Transmission Date: 20241017
  Serious: Yes (Hospitalization, Other)
  Sender: Sentiss Pharma
  Company Number: US-SENTISSAG-2024SAGLIT-00018

PATIENT
  Age: 54 Year
  Sex: Female

DRUGS (7)
  1. ALBUTEROL SULFATE [Suspect]
     Active Substance: ALBUTEROL SULFATE
     Indication: Asthma
     Dosage: EVERY 3 HOURS IN THE PAST 24 HOURS
  2. DUPILUMAB [Concomitant]
     Active Substance: DUPILUMAB
  3. Fluticasone-Umeclidinium-Vilanterol [Concomitant]
  4. MONTELUKAST [Concomitant]
     Active Substance: MONTELUKAST SODIUM
  5. IPRATROPIUM [Concomitant]
     Active Substance: IPRATROPIUM
     Indication: Asthma
     Dosage: 3 TIMES CONSECUTIVELY
  6. PREDNISONE [Concomitant]
     Active Substance: PREDNISONE
  7. METHYLPREDNISOLONE [Concomitant]
     Active Substance: METHYLPREDNISOLONE
     Indication: Asthma
     Route: 042

REACTIONS (2)
  - Lactic acidosis [Recovering/Resolving]
  - Hypokalaemia [Recovered/Resolved]
